FAERS Safety Report 22344839 (Version 1)
Quarter: 2023Q2

REPORT INFORMATION
  Report Type: Spontaneous
  Country: US (occurrence: US)
  Receive Date: 20230519
  Receipt Date: 20230519
  Transmission Date: 20230721
  Serious: No
  Sender: FDA-Public Use
  Company Number: US-BAYER-2023A064392

PATIENT
  Age: 52 Year
  Sex: Female

DRUGS (3)
  1. MIRENA [Suspect]
     Active Substance: LEVONORGESTREL
     Indication: Contraception
     Dosage: 20?G/DAY
     Route: 015
     Dates: start: 202207
  2. ANASTROZOLE [Suspect]
     Active Substance: ANASTROZOLE
  3. VERZENIO [Suspect]
     Active Substance: ABEMACICLIB

REACTIONS (1)
  - Dyspepsia [None]
